FAERS Safety Report 5373799-8 (Version None)
Quarter: 2007Q2

REPORT INFORMATION
  Report Type: 
  Country: None (occurrence: None)
  Receive Date: 20070627
  Receipt Date: 20070305
  Transmission Date: 20071010
  Serious: Yes (Death)
  Sender: FDA-Public Use
  Company Number: 485632

PATIENT
  Age: 58 Year
  Sex: Female

DRUGS (2)
  1. XELODA [Suspect]
     Indication: PANCREATIC CARCINOMA
     Dates: start: 20061226, end: 20070125
  2. GEMZAR [Concomitant]

REACTIONS (5)
  - MALIGNANT NEOPLASM PROGRESSION [None]
  - METASTASES TO LIVER [None]
  - NEUROPATHY [None]
  - PAIN [None]
  - PANCREATIC CARCINOMA METASTATIC [None]
